FAERS Safety Report 9632519 (Version 5)
Quarter: 2014Q1

REPORT INFORMATION
  Report Type: Report from Study
  Country: BE (occurrence: BE)
  Receive Date: 20131018
  Receipt Date: 20140113
  Transmission Date: 20141002
  Serious: Yes (Death, Hospitalization, Disabling, Other)
  Sender: FDA-Public Use
  Company Number: BE-BRISTOL-MYERS SQUIBB COMPANY-19413749

PATIENT
  Age: 65 Year
  Sex: Female

DRUGS (21)
  1. PACLITAXEL [Suspect]
     Indication: BREAST CANCER METASTATIC
     Route: 042
     Dates: start: 20120706
  2. DOCETAXEL [Suspect]
     Indication: BREAST CANCER METASTATIC
  3. PERTUZUMAB [Suspect]
     Indication: BREAST CANCER METASTATIC
     Route: 042
     Dates: start: 20120706, end: 20130225
  4. TRASTUZUMAB [Suspect]
     Indication: BREAST CANCER METASTATIC
     Route: 042
     Dates: start: 20120706, end: 20130225
  5. ZOLPIDEM [Concomitant]
     Dates: start: 201003
  6. ALPRAZOLAM [Concomitant]
     Dates: start: 201202
  7. LOPERAMIDE [Concomitant]
     Dates: start: 20120711
  8. HEXTRIL [Concomitant]
     Dosage: 17NOV12-19NOV12
     Route: 048
     Dates: start: 20120720, end: 20130723
  9. PARACETAMOL [Concomitant]
     Dates: start: 20120607
  10. SYSTANE [Concomitant]
     Dates: start: 201107
  11. LEVOCETIRIZINE [Concomitant]
     Indication: PROPHYLAXIS
     Dates: start: 20120706
  12. DEXAMETHASONE [Concomitant]
     Indication: PROPHYLAXIS
     Dates: start: 20120706
  13. ZOLEDRONATE [Concomitant]
     Indication: METASTASES TO BONE
     Dates: start: 20120213
  14. RANITIDINE [Concomitant]
     Indication: PROPHYLAXIS
     Dates: start: 20120706
  15. LITICAN [Concomitant]
     Indication: PROPHYLAXIS OF NAUSEA AND VOMITING
     Dosage: 25-FEB-2013.2)DOSE:6 AMPS/24HRS3)300MG?18-FEB-2013 - 25-FEB-2013 ONGOING 18 DAYS)
     Route: 065
     Dates: start: 20120706
  16. BEFACT [Concomitant]
     Dosage: TABS
     Dates: start: 20120814
  17. CHLORHEXIDINE GLUCONATE+LIDOCAINE HCL [Concomitant]
     Dosage: 1DF = 4 UNITS
     Dates: start: 20121119, end: 20121126
  18. MOTILIUM [Concomitant]
     Dates: start: 20130216, end: 20130225
  19. PRIMPERAN [Concomitant]
     Route: 065
     Dates: start: 20130217, end: 20130225
  20. POTASSIUM CHLORIDE [Concomitant]
     Dosage: 1DF:60MEQ
     Dates: start: 20130225, end: 20130228
  21. PROPYLENE GLYCOL [Concomitant]

REACTIONS (3)
  - Malignant neoplasm progression [Fatal]
  - Left ventricular dysfunction [Recovered/Resolved]
  - Vomiting [Recovered/Resolved]
